FAERS Safety Report 10070182 (Version 4)
Quarter: 2014Q3

REPORT INFORMATION
  Report Type: Report from Study
  Country: JP (occurrence: JP)
  Receive Date: 20140410
  Receipt Date: 20140926
  Transmission Date: 20150326
  Serious: Yes (Hospitalization, Other)
  Sender: FDA-Public Use
  Company Number: PHHY2012JP077781

PATIENT
  Age: 63 Year
  Sex: Male
  Weight: 62 kg

DRUGS (3)
  1. AFINITOR [Suspect]
     Active Substance: EVEROLIMUS
     Indication: PANCREATIC NEUROENDOCRINE TUMOUR
     Dosage: 10 MG, DAILY
     Route: 048
     Dates: start: 20120128, end: 20120322
  2. AFINITOR [Suspect]
     Active Substance: EVEROLIMUS
     Dosage: 5 MG, DAILY
     Route: 048
     Dates: start: 20120629, end: 20130716
  3. SANDOSTATIN LAR DEPOT [Concomitant]
     Active Substance: OCTREOTIDE ACETATE
     Indication: PANCREATIC NEUROENDOCRINE TUMOUR
     Dosage: 30 MG, UNK
     Route: 030
     Dates: start: 20090908, end: 20130716

REACTIONS (6)
  - Malignant neoplasm progression [Unknown]
  - Hypophagia [Unknown]
  - Blood glucose increased [Unknown]
  - Gamma-glutamyltransferase increased [Unknown]
  - Hypoglycaemia [Unknown]
  - Stomatitis [Recovered/Resolved]

NARRATIVE: CASE EVENT DATE: 20120309
